FAERS Safety Report 20112341 (Version 1)
Quarter: 2021Q4

REPORT INFORMATION
  Report Type: Report from Study
  Country: US (occurrence: US)
  Receive Date: 20211125
  Receipt Date: 20211125
  Transmission Date: 20220304
  Serious: Yes (Other)
  Sender: FDA-Public Use
  Company Number: US-ABBVIE-21K-163-4173042-00

PATIENT
  Sex: Female

DRUGS (6)
  1. DUOPA [Suspect]
     Active Substance: CARBIDOPA\LEVODOPA
     Indication: Parkinson^s disease
     Route: 050
  2. DUOPA [Suspect]
     Active Substance: CARBIDOPA\LEVODOPA
  3. CARBIDOPA\LEVODOPA [Concomitant]
     Active Substance: CARBIDOPA\LEVODOPA
     Indication: Product used for unknown indication
  4. ENTACAPONE [Concomitant]
     Active Substance: ENTACAPONE
     Indication: Product used for unknown indication
  5. AMANTADINE [Concomitant]
     Active Substance: AMANTADINE
     Indication: Product used for unknown indication
  6. PRAMIPEXOLE [Concomitant]
     Active Substance: PRAMIPEXOLE
     Indication: Product used for unknown indication

REACTIONS (19)
  - Cardiac failure [Unknown]
  - Diabetes mellitus [Unknown]
  - Asthma [Unknown]
  - Knee arthroplasty [Unknown]
  - Rotator cuff syndrome [Unknown]
  - Carpal tunnel syndrome [Unknown]
  - Cataract [Unknown]
  - Neoplasm [Unknown]
  - Musculoskeletal stiffness [Unknown]
  - Muscle rigidity [Unknown]
  - Device dislocation [Unknown]
  - Back disorder [Unknown]
  - Fibromyalgia [Unknown]
  - Arthritis [Unknown]
  - Back pain [Unknown]
  - Device issue [Unknown]
  - Device occlusion [Unknown]
  - Malaise [Unknown]
  - Hyperthyroidism [Unknown]
